FAERS Safety Report 5206426-0 (Version None)
Quarter: 2007Q1

REPORT INFORMATION
  Report Type: 
  Country: None (occurrence: None)
  Receive Date: 20070111
  Receipt Date: 20070104
  Transmission Date: 20070707
  Serious: Yes (Hospitalization)
  Sender: FDA-Public Use
  Company Number: US-PFIZER INC-2007001205

PATIENT
  Sex: Female
  Weight: 61.2 kg

DRUGS (8)
  1. SUTENT [Suspect]
     Indication: BREAST CANCER
     Route: 048
     Dates: start: 20061018, end: 20061114
  2. SUTENT [Suspect]
     Route: 048
  3. PACLITAXEL [Suspect]
     Indication: BREAST CANCER
     Route: 042
  4. VITAMIN CAP [Concomitant]
     Route: 048
  5. SELENIUM SULFIDE [Concomitant]
     Route: 048
     Dates: start: 20060101
  6. VITAMIN A [Concomitant]
     Route: 048
     Dates: start: 20060101
  7. CAPSAICIN [Concomitant]
     Route: 048
     Dates: start: 20060101
  8. GINKGO BILOBA [Concomitant]
     Route: 048
     Dates: start: 20060101

REACTIONS (3)
  - DYSPNOEA [None]
  - HYPOXIA [None]
  - OEDEMA PERIPHERAL [None]
